FAERS Safety Report 8612599-X (Version None)
Quarter: 2012Q3

REPORT INFORMATION
  Report Type: 
  Country: None (occurrence: None)
  Receive Date: 20120822
  Receipt Date: 20111018
  Transmission Date: 20120928
  Serious: No
  Sender: FDA-Public Use
  Company Number: US-ASTRAZENECA-2011SE62948

PATIENT
  Age: 70 Year
  Sex: Male

DRUGS (1)
  1. SYMBICORT [Suspect]
     Indication: CHRONIC OBSTRUCTIVE PULMONARY DISEASE
     Dosage: 80/4.5 MICROGRAMS, TWO PUFFS TWO TIMES A DAY
     Route: 055

REACTIONS (4)
  - CARDIAC DISORDER [None]
  - DRUG INEFFECTIVE [None]
  - DYSPNOEA [None]
  - PROSTATIC DISORDER [None]
